FAERS Safety Report 10027646 (Version 1)
Quarter: 2014Q1

REPORT INFORMATION
  Report Type: Spontaneous
  Country: FR (occurrence: FR)
  Receive Date: 20140321
  Receipt Date: 20140321
  Transmission Date: 20141002
  Serious: Yes (Hospitalization)
  Sender: FDA-Public Use
  Company Number: PHHY2014FR032964

PATIENT
  Age: 53 Year
  Sex: Male

DRUGS (13)
  1. ZOMETA [Suspect]
     Indication: BONE DISORDER
     Dosage: 120 MG PER MONTH
     Dates: start: 201211, end: 201310
  2. ZOMETA [Suspect]
     Dosage: UNK UKN, UNK
     Dates: start: 201311, end: 20131223
  3. XGEVA [Suspect]
     Dosage: 4 MG ONCE
     Dates: start: 20131025, end: 20131025
  4. XTANDI [Suspect]
     Dosage: (40 MG), 160 MG QD
     Route: 048
     Dates: start: 20131030, end: 20140120
  5. ENANTONE L.P. [Suspect]
     Dosage: 11.25 MG, 1 DF EVERY 3 MONTHS
     Dates: start: 20130907, end: 20131130
  6. OXYCONTIN [Concomitant]
     Dosage: UNK UKN, UNK
  7. OXYNORM [Concomitant]
     Dosage: UNK UKN, UNK
  8. PECFENT [Concomitant]
     Dosage: UNK UKN, UNK
  9. OMEPRAZOLE [Concomitant]
     Dosage: UNK UKN, UNK
  10. SECTRAL [Concomitant]
     Dosage: UNK UKN, UNK
  11. SOLUPRED [Concomitant]
     Dosage: UNK UKN, UNK
  12. NOCTAMIDE [Concomitant]
     Dosage: UNK UKN, UNK
  13. ZYTIGA [Concomitant]
     Dosage: UNK UKN, UNK

REACTIONS (4)
  - Cholestasis [Not Recovered/Not Resolved]
  - Subdural haematoma [Recovering/Resolving]
  - Anaemia [Not Recovered/Not Resolved]
  - Thrombocytopenia [Not Recovered/Not Resolved]
